FAERS Safety Report 6611632-4 (Version None)
Quarter: 2010Q1

REPORT INFORMATION
  Report Type: 
  Country: None (occurrence: None)
  Receive Date: 20100303
  Receipt Date: 20100201
  Transmission Date: 20100710
  Serious: Yes (Hospitalization)
  Sender: FDA-Public Use
  Company Number: PHHY2010US07097

PATIENT

DRUGS (1)
  1. TYZEKA [Suspect]

REACTIONS (2)
  - BLOOD PRESSURE ABNORMAL [None]
  - LIVER DISORDER [None]
